FAERS Safety Report 20225000 (Version 3)
Quarter: 2022Q1

REPORT INFORMATION
  Report Type: Report from Study
  Country: DE (occurrence: DE)
  Receive Date: 20211223
  Receipt Date: 20220114
  Transmission Date: 20220423
  Serious: Yes (Other)
  Sender: FDA-Public Use
  Company Number: DE-NOVARTISPH-NVSC2021DE290485

PATIENT
  Sex: Male
  Weight: 101 kg

DRUGS (21)
  1. COSENTYX [Suspect]
     Active Substance: SECUKINUMAB
     Indication: Psoriatic arthropathy
     Dosage: 300 MG (ONCE)
     Route: 058
     Dates: start: 20200519, end: 20200519
  2. COSENTYX [Suspect]
     Active Substance: SECUKINUMAB
     Dosage: 300 MG (ONCE)
     Route: 058
     Dates: start: 20200526, end: 20200526
  3. COSENTYX [Suspect]
     Active Substance: SECUKINUMAB
     Dosage: 300 MG (ONCE)
     Route: 058
     Dates: start: 20200602, end: 20200602
  4. COSENTYX [Suspect]
     Active Substance: SECUKINUMAB
     Dosage: 300 MG (ONCE)
     Route: 058
     Dates: start: 20200609, end: 20200609
  5. COSENTYX [Suspect]
     Active Substance: SECUKINUMAB
     Dosage: 300 MG (ONCE)
     Route: 058
     Dates: start: 20200616, end: 20200616
  6. COSENTYX [Suspect]
     Active Substance: SECUKINUMAB
     Dosage: 300 MG (ONCE)
     Route: 058
     Dates: start: 20200712, end: 20200712
  7. COSENTYX [Suspect]
     Active Substance: SECUKINUMAB
     Dosage: 300 MG (ONCE)
     Route: 058
     Dates: start: 20200809, end: 20200809
  8. COSENTYX [Suspect]
     Active Substance: SECUKINUMAB
     Dosage: 300 MG (ONCE)
     Route: 058
     Dates: start: 20200906, end: 20200906
  9. COSENTYX [Suspect]
     Active Substance: SECUKINUMAB
     Dosage: 300 MG (ONCE)
     Route: 058
     Dates: start: 20201004, end: 20201004
  10. COSENTYX [Suspect]
     Active Substance: SECUKINUMAB
     Dosage: 300 MG (ONCE)
     Route: 058
     Dates: start: 20201101, end: 20201101
  11. COSENTYX [Suspect]
     Active Substance: SECUKINUMAB
     Dosage: 300 MG (ONCE)
     Route: 058
     Dates: start: 20201206, end: 20201206
  12. COSENTYX [Suspect]
     Active Substance: SECUKINUMAB
     Dosage: 300 MG (ONCE)
     Route: 058
     Dates: start: 20210103, end: 20210103
  13. COSENTYX [Suspect]
     Active Substance: SECUKINUMAB
     Dosage: 300 MG (ONCE)
     Route: 058
     Dates: start: 20210207, end: 20210207
  14. COSENTYX [Suspect]
     Active Substance: SECUKINUMAB
     Dosage: 300 MG (ONCE)
     Route: 058
     Dates: start: 20210307, end: 20210307
  15. COSENTYX [Suspect]
     Active Substance: SECUKINUMAB
     Dosage: 300 MG (ONCE)
     Route: 058
     Dates: start: 20210404, end: 20210404
  16. COSENTYX [Suspect]
     Active Substance: SECUKINUMAB
     Dosage: 300 MG (ONCE)
     Route: 058
     Dates: start: 20210502, end: 20210502
  17. METHOTREXATE [Concomitant]
     Active Substance: METHOTREXATE
     Indication: Psoriatic arthropathy
     Dosage: 15 MG, QW
     Route: 058
     Dates: start: 20191227
  18. METHOTREXATE [Concomitant]
     Active Substance: METHOTREXATE
     Dosage: 10 MG, QW
     Route: 058
     Dates: start: 20200505, end: 20200901
  19. FOLIC ACID [Concomitant]
     Active Substance: FOLIC ACID
     Indication: Prophylaxis
     Dosage: 5 MG, QW
     Route: 048
     Dates: start: 20191228
  20. IBUPROFEN [Concomitant]
     Active Substance: IBUPROFEN
     Indication: Psoriatic arthropathy
     Dosage: 600 MG, TID
     Route: 048
     Dates: start: 20191220, end: 20191227
  21. METAMIZOLE [Concomitant]
     Active Substance: METAMIZOLE
     Indication: Psoriatic arthropathy
     Dosage: 500 MG, QID (4X DAILY IF NEEDED)
     Route: 048
     Dates: start: 20191227

REACTIONS (4)
  - Leukopenia [Recovered/Resolved]
  - Erythema migrans [Recovered/Resolved]
  - Arthropod bite [Recovered/Resolved]
  - Alanine aminotransferase increased [Unknown]

NARRATIVE: CASE EVENT DATE: 20200616
